FAERS Safety Report 4755143-X (Version None)
Quarter: 2005Q3

REPORT INFORMATION
  Report Type: 
  Country: None (occurrence: None)
  Receive Date: 20050829
  Receipt Date: 20041118
  Transmission Date: 20060218
  Serious: Yes (Life-Threatening, Hospitalization)
  Sender: FDA-Public Use
  Company Number: DE-SANOFI-SYNTHELABO-A04200401111

PATIENT
  Sex: Female
  Weight: 72 kg

DRUGS (5)
  1. ELOXATIN [Suspect]
     Indication: COLON CANCER METASTATIC
     Route: 041
     Dates: start: 20041025, end: 20041025
  2. FLUOROURACIL INJ [Concomitant]
     Indication: COLON CANCER METASTATIC
     Route: 041
     Dates: start: 20041025, end: 20041025
  3. FOLINIC ACID [Concomitant]
     Indication: COLON CANCER METASTATIC
     Route: 040
     Dates: start: 20041025, end: 20041025
  4. DEXAMETHASONE [Concomitant]
     Indication: PROPHYLAXIS OF NAUSEA AND VOMITING
     Route: 040
     Dates: start: 20041025, end: 20041025
  5. KEVATRIL [Concomitant]
     Indication: PROPHYLAXIS OF NAUSEA AND VOMITING
     Route: 040
     Dates: start: 20041025, end: 20041025

REACTIONS (8)
  - CHILLS [None]
  - DRUG TOXICITY [None]
  - HAEMOLYTIC ANAEMIA [None]
  - JAUNDICE [None]
  - PANCYTOPENIA [None]
  - RENAL FAILURE ACUTE [None]
  - RENAL TUBULAR DISORDER [None]
  - RENAL TUBULAR NECROSIS [None]
